FAERS Safety Report 7259725-5 (Version None)
Quarter: 2011Q1

REPORT INFORMATION
  Report Type: 
  Country: None (occurrence: None)
  Receive Date: 20110130
  Receipt Date: 20101103
  Transmission Date: 20110831
  Serious: No
  Sender: FDA-Public Use
  Company Number: US-ABBOTT-10P-163-0661404-00

PATIENT
  Sex: Female
  Weight: 58.566 kg

DRUGS (13)
  1. PHENOBARBITAL AND BELLADONNA [Concomitant]
     Indication: GASTROINTESTINAL PAIN
  2. AMBIEN [Concomitant]
     Indication: INSOMNIA
  3. METHIMAZOLE [Concomitant]
     Indication: HYPERTHYROIDISM
  4. MIRAPEX [Concomitant]
     Indication: RESTLESS LEGS SYNDROME
  5. LOMOTIL [Concomitant]
     Indication: DIARRHOEA
     Dosage: EVERT 4 HRS AS NEEDED
  6. LAMICTAL [Concomitant]
     Indication: DEPRESSION
  7. HUMIRA [Suspect]
     Indication: CROHN'S DISEASE
     Route: 058
     Dates: start: 20081101
  8. PHENOBARBITAL AND BELLADONNA [Concomitant]
     Indication: CROHN'S DISEASE
  9. PERCOCET [Concomitant]
     Indication: MYALGIA
     Route: 048
  10. CITALOPRAM [Concomitant]
     Indication: DEPRESSION
  11. PENTASA [Concomitant]
     Indication: CROHN'S DISEASE
     Dosage: NOT TAKING MEDICATION ON REGULAR BASIS
  12. KLONOPIN [Concomitant]
     Indication: ANXIETY
  13. PROMETHAZINE [Concomitant]
     Indication: NAUSEA

REACTIONS (9)
  - INCREASED TENDENCY TO BRUISE [None]
  - PSORIASIS [None]
  - WEIGHT DECREASED [None]
  - VITAMIN B12 DECREASED [None]
  - GAIT DISTURBANCE [None]
  - DEPRESSION [None]
  - FALL [None]
  - DIZZINESS [None]
  - MYALGIA [None]
